FAERS Safety Report 23562007 (Version 3)
Quarter: 2024Q1

REPORT INFORMATION
  Report Type: Report from Study
  Country: CH (occurrence: CH)
  Receive Date: 20240226
  Receipt Date: 20240308
  Transmission Date: 20240410
  Serious: Yes (Death, Other)
  Sender: FDA-Public Use
  Company Number: CH-ABBVIE-5650374

PATIENT
  Age: 81 Year
  Sex: Male

DRUGS (4)
  1. CARBIDOPA\LEVODOPA [Suspect]
     Active Substance: CARBIDOPA\LEVODOPA
     Indication: Parkinson^s disease
     Dosage: MD: 5.0 ML, CRD: 1.8 ML/H, ED: 1.5 ML; CRN: 0.5 ML/H?FREQUENCY TEXT: 24H THERAPY
     Route: 050
     Dates: start: 20231009, end: 20240303
  2. CARBIDOPA\LEVODOPA [Suspect]
     Active Substance: CARBIDOPA\LEVODOPA
     Dosage: FREQUENCY TEXT: 24H THERAPY
     Route: 050
     Dates: start: 20141103
  3. CARBIDOPA\LEVODOPA [Suspect]
     Active Substance: CARBIDOPA\LEVODOPA
     Dosage: MD: 3.0 ML, CRD: 1.9 ML/H, ED: 1.5 ML; CRN: 0.5 ML/H; ?FREQUENCY TEXT: 24H THERAPY
     Route: 050
     Dates: start: 20230912, end: 20231009
  4. MORPHINE [Concomitant]
     Active Substance: MORPHINE
     Indication: Product used for unknown indication
     Dosage: M? DROPS

REACTIONS (12)
  - Terminal state [Fatal]
  - Restlessness [Recovering/Resolving]
  - Enteral nutrition [Not Recovered/Not Resolved]
  - Bedridden [Fatal]
  - Cough [Unknown]
  - Hypophagia [Not Recovered/Not Resolved]
  - Multimorbidity [Fatal]
  - Device issue [Unknown]
  - Fluid intake reduced [Not Recovered/Not Resolved]
  - Pulmonary embolism [Fatal]
  - Parkinson^s disease [Fatal]
  - Alexithymia [Not Recovered/Not Resolved]

NARRATIVE: CASE EVENT DATE: 20230801
